FAERS Safety Report 19299396 (Version 1)
Quarter: 2021Q2

REPORT INFORMATION
  Report Type: Spontaneous
  Country: US (occurrence: US)
  Receive Date: 20210524
  Receipt Date: 20210524
  Transmission Date: 20210717
  Serious: Yes (Hospitalization)
  Sender: FDA-Public Use
  Company Number: None

PATIENT
  Age: 65 Year
  Sex: Female

DRUGS (17)
  1. DICLOFENAC DIS [Concomitant]
  2. ELIQUIS [Concomitant]
     Active Substance: APIXABAN
  3. TAMSULOSIN [Concomitant]
     Active Substance: TAMSULOSIN
  4. POT CL MICRO ER [Concomitant]
  5. LEVOTHYROXIN [Concomitant]
     Active Substance: LEVOTHYROXINE
  6. DICLOFENAC DR [Concomitant]
     Active Substance: DICLOFENAC SODIUM
  7. OXYCODONE AND ACETAMINOPHEN [Concomitant]
     Active Substance: ACETAMINOPHEN\OXYCODONE HYDROCHLORIDE
  8. ONDANSETRON [Concomitant]
     Active Substance: ONDANSETRON
  9. TALTZ [Suspect]
     Active Substance: IXEKIZUMAB
     Indication: ANKYLOSING SPONDYLITIS
     Dosage: ?          OTHER FREQUENCY:EVERY 4 WEEKS;?
     Route: 058
     Dates: start: 20210309, end: 20210520
  10. NAPROXEN. [Concomitant]
     Active Substance: NAPROXEN
  11. ATORVASTATIN [Concomitant]
     Active Substance: ATORVASTATIN
  12. METOPROL TAR [Concomitant]
  13. METHOTREXATE. [Concomitant]
     Active Substance: METHOTREXATE
  14. AMLODIPINE [Concomitant]
     Active Substance: AMLODIPINE BESYLATE
  15. CLOBETASOL [Concomitant]
     Active Substance: CLOBETASOL
  16. DOFETILIDE. [Concomitant]
     Active Substance: DOFETILIDE
  17. TRIAMCINOLON [Concomitant]

REACTIONS (1)
  - Atrial fibrillation [None]

NARRATIVE: CASE EVENT DATE: 20210517
